FAERS Safety Report 6012832-7 (Version None)
Quarter: 2008Q4

REPORT INFORMATION
  Report Type: 
  Country: None (occurrence: None)
  Receive Date: 20081219
  Receipt Date: 20081211
  Transmission Date: 20090506
  Serious: Yes (Hospitalization, Other)
  Sender: FDA-Public Use
  Company Number: US-BAYER-200840580NA

PATIENT
  Age: 48 Year
  Sex: Female
  Weight: 59 kg

DRUGS (3)
  1. MIRENA [Suspect]
     Indication: CONTRACEPTION
     Route: 015
     Dates: start: 20080601, end: 20081110
  2. CELEXA [Concomitant]
  3. NEXIUM [Concomitant]

REACTIONS (6)
  - CHILLS [None]
  - COMPLICATION OF DEVICE INSERTION [None]
  - GASTROINTESTINAL DISORDER [None]
  - PAIN [None]
  - PELVIC INFECTION [None]
  - VAGINAL HAEMORRHAGE [None]
